FAERS Safety Report 13635311 (Version 1)
Quarter: 2017Q2

REPORT INFORMATION
  Report Type: Spontaneous
  Country: US (occurrence: US)
  Receive Date: 20170609
  Receipt Date: 20170609
  Transmission Date: 20170830
  Serious: No
  Sender: FDA-Public Use
  Company Number: US-PFIZER INC-2016460957

PATIENT
  Age: 77 Year
  Sex: Female

DRUGS (8)
  1. NATURE-THROID [Concomitant]
     Active Substance: THYROID, PORCINE
     Dosage: 16.2 MG (1 TABLET), DAILY
     Route: 048
  2. HYDROCODONE BITARTAT.+ HOMATOPRINE METHYLBR. [Concomitant]
     Active Substance: HOMATROPINE METHYLBROMIDE\HYDROCODONE BITARTRATE
     Dosage: 5 ML, 4X/DAY (QID) (5-1.5 MG/ 5 ML)
     Route: 048
  3. XARELTO [Concomitant]
     Active Substance: RIVAROXABAN
     Dosage: 20 MG (1 TABLET), DAILY
     Route: 048
  4. CRIZOTINIB [Concomitant]
     Active Substance: CRIZOTINIB
     Indication: LUNG NEOPLASM MALIGNANT
     Dosage: 250 MG, TWICE A DAY (BID) WITH OR WITHOUT FOOD
     Route: 048
  5. HYDROCODONE/ACETAMINOPHEN [Concomitant]
     Active Substance: ACETAMINOPHEN\HYDROCODONE
     Indication: PAIN
     Dosage: 1 DF, EVERY 4 HOURS (Q4H) AS NEEDED [HYDROCODONE BITARTRATE 10MG/PARACETAMOL 325MG]
     Route: 048
  6. VITAMIN E [Concomitant]
     Active Substance: .ALPHA.-TOCOPHEROL
     Dosage: 1000 IU (1 CAPSULE), DAILY
     Route: 048
  7. COQ 10 [Concomitant]
     Active Substance: UBIDECARENONE
     Dosage: 30 MG (1 CAPSULE), DAILY
     Route: 048
  8. XALKORI [Suspect]
     Active Substance: CRIZOTINIB
     Indication: NON-SMALL CELL LUNG CANCER
     Dosage: 250 MG, TWICE DAILY
     Route: 048

REACTIONS (2)
  - Abdominal distension [Unknown]
  - Flatulence [Unknown]
